FAERS Safety Report 10524383 (Version 1)
Quarter: 2014Q4

REPORT INFORMATION
  Report Type: Spontaneous
  Country: US (occurrence: None)
  Receive Date: 20141015
  Receipt Date: 20141015
  Transmission Date: 20150528
  Serious: No
  Sender: FDA-Public Use
  Company Number: None

PATIENT

DRUGS (2)
  1. ONDANSETRON [Suspect]
     Active Substance: ONDANSETRON
     Dosage: INJECTABLE INJECTION 4 MG /2ML (1 MG/ML) SINGLE DOSE VIAL 2 ML
  2. SUMATRIPTAN. [Suspect]
     Active Substance: SUMATRIPTAN

REACTIONS (1)
  - Product packaging confusion [None]
